FAERS Safety Report 23313517 (Version 1)
Quarter: 2023Q4

REPORT INFORMATION
  Report Type: Spontaneous
  Country: US (occurrence: US)
  Receive Date: 20231219
  Receipt Date: 20231219
  Transmission Date: 20240110
  Serious: No
  Sender: FDA-Public Use
  Company Number: US-ELI_LILLY_AND_COMPANY-US202312006920

PATIENT
  Sex: Female

DRUGS (1)
  1. MOUNJARO [Suspect]
     Active Substance: TIRZEPATIDE
     Indication: Blood glucose
     Dosage: 15 MG, UNKNOWN
     Route: 058

REACTIONS (3)
  - Off label use [Unknown]
  - Blood glucose fluctuation [Not Recovered/Not Resolved]
  - Therapeutic response shortened [Unknown]
